FAERS Safety Report 21258572 (Version 1)
Quarter: 2022Q3

REPORT INFORMATION
  Report Type: Spontaneous
  Country: RU (occurrence: RU)
  Receive Date: 20220826
  Receipt Date: 20220826
  Transmission Date: 20221027
  Serious: No
  Sender: FDA-Public Use
  Company Number: RU-009507513-2208RUS008496

PATIENT
  Age: 73 Year
  Sex: Female

DRUGS (1)
  1. LAGEVRIO [Suspect]
     Active Substance: MOLNUPIRAVIR
     Dosage: 6 CAPSULES IN THE MORNING AND IN THE EVENING
     Route: 048

REACTIONS (5)
  - Noninfective gingivitis [Unknown]
  - Body temperature increased [Unknown]
  - Product prescribing issue [Unknown]
  - Product use issue [Unknown]
  - Overdose [Unknown]
